FAERS Safety Report 11495472 (Version 1)
Quarter: 2015Q3

REPORT INFORMATION
  Report Type: Spontaneous
  Country: US (occurrence: US)
  Receive Date: 20150911
  Receipt Date: 20150911
  Transmission Date: 20151125
  Serious: No
  Sender: FDA-Public Use
  Company Number: US-ROCHE-1014248

PATIENT
  Sex: Male

DRUGS (2)
  1. COPEGUS [Suspect]
     Active Substance: RIBAVIRIN
     Indication: CHRONIC HEPATITIS C
     Dosage: DIVIDED DOSES
     Route: 048
     Dates: start: 20110702
  2. PEGASYS [Suspect]
     Active Substance: PEGINTERFERON ALFA-2A
     Indication: CHRONIC HEPATITIS C
     Route: 058
     Dates: start: 20110702

REACTIONS (8)
  - Depression [Unknown]
  - Restlessness [Unknown]
  - Anaemia [Unknown]
  - Skin ulcer [Recovering/Resolving]
  - Cough [Unknown]
  - Fatigue [Unknown]
  - Listless [Unknown]
  - Dyspnoea [Unknown]
